FAERS Safety Report 21734422 (Version 1)
Quarter: 2022Q4

REPORT INFORMATION
  Report Type: Report from Study
  Country: US (occurrence: US)
  Receive Date: 20221215
  Receipt Date: 20221215
  Transmission Date: 20230112
  Serious: No
  Sender: FDA-Public Use
  Company Number: US-ABBVIE-4199455

PATIENT
  Sex: Female

DRUGS (3)
  1. HUMIRA [Suspect]
     Active Substance: ADALIMUMAB
     Indication: Colitis ulcerative
     Dosage: DAY 29?ONSET DATE FOR EVENT DEPRESSION WAS 2022
     Route: 058
     Dates: start: 20220224
  2. HUMIRA [Suspect]
     Active Substance: ADALIMUMAB
     Dosage: DAY ONE
     Route: 058
     Dates: start: 20220127, end: 20220127
  3. HUMIRA [Suspect]
     Active Substance: ADALIMUMAB
     Dosage: DAY 15
     Route: 058
     Dates: start: 20220210, end: 20220210

REACTIONS (1)
  - Depression [Unknown]
